FAERS Safety Report 24247459 (Version 4)
Quarter: 2025Q1

REPORT INFORMATION
  Report Type: Report from Study
  Country: US (occurrence: US)
  Receive Date: 20240826
  Receipt Date: 20250128
  Transmission Date: 20250409
  Serious: Yes (Hospitalization, Other)
  Sender: JAZZ
  Company Number: US-JAZZ PHARMACEUTICALS-2024-US-013292

PATIENT
  Sex: Male

DRUGS (2)
  1. EPIDIOLEX [Suspect]
     Active Substance: CANNABIDIOL
     Indication: Severe myoclonic epilepsy of infancy
     Dosage: 1.8 MILLILITER, BID, VIA G TUBE
     Dates: start: 202307
  2. EPIDIOLEX [Suspect]
     Active Substance: CANNABIDIOL
     Indication: Status epilepticus
     Dosage: 1.8 MILLILITER, BID
     Route: 048
     Dates: start: 202307

REACTIONS (4)
  - Anaemia [Unknown]
  - Generalised oedema [Unknown]
  - Acute respiratory failure [Unknown]
  - Weight decreased [Unknown]
